FAERS Safety Report 9970736 (Version 2)
Quarter: 2014Q1

REPORT INFORMATION
  Report Type: Report from Study
  Country: PR (occurrence: PR)
  Receive Date: 20140306
  Receipt Date: 20140306
  Transmission Date: 20141002
  Serious: Yes (Disabling)
  Sender: FDA-Public Use
  Company Number: PR-ABBVIE-13P-131-1137120-00

PATIENT
  Age: 71 Year
  Sex: Male
  Weight: 68.1 kg

DRUGS (7)
  1. HUMIRA [Suspect]
     Indication: PSORIATIC ARTHROPATHY
     Route: 058
     Dates: start: 2012, end: 201306
  2. VALERIANA TEA [Suspect]
     Indication: INSOMNIA
     Dosage: AT NIGHT
     Route: 048
     Dates: start: 201309
  3. DIGOXIN [Concomitant]
     Indication: CARDIAC DISORDER
     Route: 048
     Dates: end: 201308
  4. COUMADIN [Concomitant]
     Indication: PERIPHERAL VASCULAR DISORDER
     Route: 048
     Dates: end: 201308
  5. CARVEDIL [Concomitant]
     Indication: CARDIAC DISORDER
     Route: 048
     Dates: end: 201308
  6. FORMULA 303 [Concomitant]
     Indication: PAIN
     Route: 048
     Dates: start: 201309
  7. NUTRI-FIT [Concomitant]
     Indication: SUPPLEMENTATION THERAPY
     Route: 048
     Dates: start: 201309

REACTIONS (3)
  - Bone cancer [Not Recovered/Not Resolved]
  - Bedridden [Unknown]
  - Aphasia [Unknown]
